FAERS Safety Report 9870344 (Version 1)
Quarter: 2014Q1

REPORT INFORMATION
  Report Type: Spontaneous
  Country: US (occurrence: None)
  Receive Date: 20140203
  Receipt Date: 20140203
  Transmission Date: 20141002
  Serious: Yes (Hospitalization)
  Sender: FDA-Public Use
  Company Number: 2014AP000925

PATIENT
  Age: 27 Year
  Sex: Female

DRUGS (8)
  1. LEVETIRACETAM [Suspect]
     Indication: CONVULSION
  2. TOPIRAMATE [Suspect]
     Indication: CONVULSION
  3. LORAZEPAM [Suspect]
     Indication: CONVULSION
  4. PHENYTOIN [Suspect]
     Indication: CONVULSION
     Route: 042
  5. MIDAZOLAM [Suspect]
     Indication: CONVULSION
  6. LACOSAMIDE [Suspect]
     Indication: CONVULSION
  7. PROPOFOL [Suspect]
  8. PHENOBARBITAL [Suspect]
     Indication: CONVULSION
     Route: 042

REACTIONS (10)
  - Convulsion [None]
  - Status epilepticus [None]
  - Hypotension [None]
  - Drug reaction with eosinophilia and systemic symptoms [None]
  - Epilepsy [None]
  - Ileus [None]
  - Drug level below therapeutic [None]
  - Encephalitis autoimmune [None]
  - Transaminases increased [None]
  - Drug effect incomplete [None]
